FAERS Safety Report 15721328 (Version 3)
Quarter: 2019Q1

REPORT INFORMATION
  Report Type: Spontaneous
  Country: GB (occurrence: GB)
  Receive Date: 20181214
  Receipt Date: 20190205
  Transmission Date: 20190417
  Serious: Yes (Life-Threatening, Hospitalization, Other)
  Sender: FDA-Public Use
  Company Number: GB-ACCORD-095741

PATIENT
  Age: 47 Year
  Sex: Female
  Weight: 111 kg

DRUGS (5)
  1. CLOZAPINE. [Suspect]
     Active Substance: CLOZAPINE
     Indication: SCHIZOPHRENIA
     Dosage: ALSO RECEIVED FROM 21-JAN-2018 TO 29-JAN-2018 FOR 8 DAYS, FOR PSYCHOSIS.
     Route: 048
     Dates: start: 20180112, end: 20180128
  2. HYOSCINE [Concomitant]
     Active Substance: SCOPOLAMINE
  3. LORAZEPAM. [Concomitant]
     Active Substance: LORAZEPAM
     Indication: SCHIZOPHRENIA
     Dosage: STOPPED FOR A WHILE.
  4. CLOZAPINE. [Suspect]
     Active Substance: CLOZAPINE
     Indication: SCHIZOPHRENIA
     Route: 048
     Dates: start: 20180128, end: 20180130
  5. HALOPERIDOL. [Concomitant]
     Active Substance: HALOPERIDOL
     Indication: SCHIZOPHRENIA

REACTIONS (5)
  - Cardiomegaly [Unknown]
  - Myocarditis [Recovered/Resolved]
  - Lower respiratory tract infection [Unknown]
  - Influenza like illness [Unknown]
  - Malaise [Unknown]

NARRATIVE: CASE EVENT DATE: 20180129
